FAERS Safety Report 6092576-6 (Version None)
Quarter: 2009Q1

REPORT INFORMATION
  Report Type: 
  Country: None (occurrence: None)
  Receive Date: 20090225
  Receipt Date: 20080414
  Transmission Date: 20090719
  Serious: Yes (Disabling, Other)
  Sender: FDA-Public Use
  Company Number: US-BRISTOL-MYERS SQUIBB COMPANY-13892583

PATIENT
  Age: 70 Year
  Sex: Male
  Weight: 98 kg

DRUGS (4)
  1. KENALOG-10 [Suspect]
     Indication: MACULAR DEGENERATION
     Dosage: THERAPY DURATION=1 DOSE;DOSE GIVEN=0.1CC(4MG)
     Route: 031
     Dates: start: 20070415, end: 20070419
  2. DIOVAN HCT [Concomitant]
  3. ALLOPURINOL [Concomitant]
  4. LEVOTHYROXINE SODIUM [Concomitant]

REACTIONS (2)
  - BLINDNESS [None]
  - GLAUCOMA [None]
